FAERS Safety Report 12113236 (Version 1)
Quarter: 2016Q1

REPORT INFORMATION
  Report Type: Spontaneous
  Country: US (occurrence: US)
  Receive Date: 20160225
  Receipt Date: 20160225
  Transmission Date: 20160526
  Serious: No
  Sender: FDA-Public Use
  Company Number: US-GLENMARK PHARMACEUTICALS INC, USA.-2016GMK021792

PATIENT

DRUGS (1)
  1. OMEPRAZOLE. [Suspect]
     Active Substance: OMEPRAZOLE
     Indication: GASTROOESOPHAGEAL REFLUX DISEASE
     Dosage: UNK

REACTIONS (6)
  - Vomiting [Unknown]
  - Gastrooesophageal reflux disease [Unknown]
  - Drug ineffective [Unknown]
  - Abdominal discomfort [Unknown]
  - Eructation [Unknown]
  - Nausea [Unknown]
